FAERS Safety Report 11146294 (Version 2)
Quarter: 2015Q2

REPORT INFORMATION
  Report Type: Spontaneous
  Country: US (occurrence: US)
  Receive Date: 20150528
  Receipt Date: 20150603
  Transmission Date: 20150821
  Serious: No
  Sender: FDA-Public Use
  Company Number: US-PFIZER INC-2015174115

PATIENT
  Age: 55 Year
  Sex: Male
  Weight: 88 kg

DRUGS (5)
  1. CARBATROL [Concomitant]
     Active Substance: CARBAMAZEPINE
  2. WARFARIN [Concomitant]
     Active Substance: WARFARIN
  3. VIAGRA [Suspect]
     Active Substance: SILDENAFIL CITRATE
     Indication: ERECTILE DYSFUNCTION
     Dosage: 100 MG, 2 OR 3 TIMES A WEEK
  4. ASPIRIN. [Concomitant]
     Active Substance: ASPIRIN
     Dosage: 81 MG, UNK
  5. METFORMIN [Concomitant]
     Active Substance: METFORMIN HYDROCHLORIDE

REACTIONS (1)
  - Hypoaesthesia oral [Unknown]
